FAERS Safety Report 6876625-0 (Version None)
Quarter: 2010Q3

REPORT INFORMATION
  Report Type: 
  Country: None (occurrence: None)
  Receive Date: 20100727
  Receipt Date: 20100712
  Transmission Date: 20110219
  Serious: Yes (Other)
  Sender: FDA-Public Use
  Company Number: JP-PFIZER INC-2010077230

PATIENT
  Sex: Male
  Weight: 56 kg

DRUGS (8)
  1. CHAMPIX [Suspect]
     Indication: NICOTINE DEPENDENCE
     Dosage: 0.5 MG, 1X/DAY
     Route: 048
     Dates: start: 20100523, end: 20100525
  2. CHAMPIX [Suspect]
     Dosage: 0.5 MG, 2X/DAY
     Route: 048
     Dates: start: 20100526, end: 20100529
  3. CHAMPIX [Suspect]
     Dosage: 1.0 MG, 2X/DAY
     Route: 048
     Dates: start: 20100530, end: 20100604
  4. CHAMPIX [Suspect]
     Dosage: 1.0 MG, 2X/DAY
     Route: 048
     Dates: start: 20100605, end: 20100607
  5. CHAMPIX [Suspect]
     Dosage: 0.5 MG, 1X/DAY
     Route: 048
     Dates: start: 20100608, end: 20100615
  6. PRIMPERAN TAB [Concomitant]
     Indication: NAUSEA
     Dosage: 5 MG, 2X/DAY
     Route: 048
     Dates: start: 20100531, end: 20100602
  7. NEUROVITAN [Concomitant]
     Indication: GLOSSITIS
     Dosage: 1 DF, 3X/DAY
     Route: 048
     Dates: start: 20100605, end: 20100614
  8. NEUROVITAN [Concomitant]
     Dosage: UNK

REACTIONS (9)
  - ACTIVITIES OF DAILY LIVING IMPAIRED [None]
  - DEPRESSION [None]
  - DYSGEUSIA [None]
  - GLOSSITIS [None]
  - GLOSSODYNIA [None]
  - HEADACHE [None]
  - HYPERHIDROSIS [None]
  - MALAISE [None]
  - NAUSEA [None]
